FAERS Safety Report 9377897 (Version 2)
Quarter: 2013Q4

REPORT INFORMATION
  Report Type: Spontaneous
  Country: JP (occurrence: JP)
  Receive Date: 20130701
  Receipt Date: 20131209
  Transmission Date: 20140711
  Serious: Yes (Other)
  Sender: FDA-Public Use
  Company Number: CHNY2013JP001199

PATIENT
  Age: 90 Year
  Sex: Female
  Weight: 35 kg

DRUGS (2)
  1. LAMISIL [Suspect]
     Indication: GENITAL INFECTION FUNGAL
     Dosage: UNK, UNK
     Route: 061
     Dates: start: 20130515, end: 20130517
  2. LAMISIL [Suspect]
     Indication: OFF LABEL USE

REACTIONS (2)
  - Hepatic enzyme increased [Unknown]
  - Generalised erythema [Recovered/Resolved]
